FAERS Safety Report 7301044-2 (Version None)
Quarter: 2010Q4

REPORT INFORMATION
  Report Type: 
  Country: None (occurrence: None)
  Receive Date: 20101229
  Receipt Date: 20101007
  Transmission Date: 20110411
  Serious: No
  Sender: FDA-Public Use
  Company Number: 1000016689

PATIENT
  Age: 84 Year
  Sex: Female

DRUGS (3)
  1. BYSTOLIC [Suspect]
     Indication: HYPERTENSION
     Dosage: 2.5 MG (2.5 MG, 1 IN 1 D), ORAL
     Route: 048
     Dates: start: 20100916
  2. PREDNISONE [Concomitant]
  3. CRESTOR [Concomitant]

REACTIONS (1)
  - OEDEMA PERIPHERAL [None]
